FAERS Safety Report 17917415 (Version 4)
Quarter: 2020Q3

REPORT INFORMATION
  Report Type: Spontaneous
  Country: CH (occurrence: CH)
  Receive Date: 20200619
  Receipt Date: 20200818
  Transmission Date: 20201103
  Serious: Yes (Other)
  Sender: FDA-Public Use
  Company Number: CH-GUERBET-CH-20200020

PATIENT
  Age: 32 Year
  Sex: Female
  Weight: 65 kg

DRUGS (7)
  1. OVALEAP [Concomitant]
     Active Substance: FOLLITROPIN
     Indication: INFERTILITY
     Dosage: 37.5 IE
     Route: 065
     Dates: start: 20191112, end: 20191117
  2. OVITRELLE [Concomitant]
     Active Substance: CHORIOGONADOTROPIN ALFA
     Route: 065
     Dates: start: 20191120, end: 20191120
  3. LIPIODOL [Suspect]
     Active Substance: ETHIODIZED OIL
     Indication: HYSTEROSALPINGOGRAM
     Dosage: 2?4 ML INTAKE BETWEEN SEPTEMBER 2019 AND FEBRUARY 2020
     Route: 015
     Dates: start: 20190912, end: 20190912
  4. ANDREAFOL [Concomitant]
     Indication: PROPHYLAXIS
     Route: 048
     Dates: start: 20190219, end: 20191204
  5. OVITRELLE [Concomitant]
     Active Substance: CHORIOGONADOTROPIN ALFA
     Indication: OVULATION INDUCTION
     Route: 065
     Dates: start: 20191118, end: 20191118
  6. CLOMIFENE [Concomitant]
     Active Substance: CLOMIPHENE
     Indication: INFERTILITY
     Route: 065
  7. PARLODEL [Concomitant]
     Active Substance: BROMOCRIPTINE MESYLATE
     Indication: HYPERPROLACTINAEMIA
     Route: 048
     Dates: start: 20190313, end: 20191204

REACTIONS (3)
  - Product use in unapproved indication [Unknown]
  - Maternal exposure before pregnancy [Unknown]
  - Abortion [Unknown]

NARRATIVE: CASE EVENT DATE: 20190912
